FAERS Safety Report 23688787 (Version 1)
Quarter: 2024Q1

REPORT INFORMATION
  Report Type: Spontaneous
  Country: PL (occurrence: PL)
  Receive Date: 20240329
  Receipt Date: 20240329
  Transmission Date: 20240409
  Serious: Yes (Hospitalization, Other)
  Sender: FDA-Public Use
  Company Number: PL-GILEAD-2024-0666279

PATIENT
  Age: 44 Year

DRUGS (4)
  1. YESCARTA [Suspect]
     Active Substance: AXICABTAGENE CILOLEUCEL
     Indication: Primary mediastinal large B-cell lymphoma
     Dosage: UNK
     Route: 042
     Dates: start: 20230524, end: 20230524
  2. FLUDARABINE [Concomitant]
     Active Substance: FLUDARABINE PHOSPHATE
     Indication: Lymphodepletion
     Dosage: 30 MG/M2QD FOR 3 DAYS
     Route: 042
     Dates: start: 202305, end: 202305
  3. CYCLOPHOSPHAMIDE [Concomitant]
     Active Substance: CYCLOPHOSPHAMIDE
     Indication: Lymphodepletion
     Dosage: 500 MG/M2
     Route: 042
     Dates: start: 202305, end: 202305
  4. ALPRAZOLAM [Concomitant]
     Active Substance: ALPRAZOLAM
     Indication: Anxiety
     Dosage: UNK
     Dates: start: 202305

REACTIONS (5)
  - Respiratory disorder [Unknown]
  - Pancytopenia [Unknown]
  - Agranulocytosis [Unknown]
  - Immune effector cell-associated neurotoxicity syndrome [Recovered/Resolved]
  - Cytokine release syndrome [Unknown]

NARRATIVE: CASE EVENT DATE: 20230526
